FAERS Safety Report 7110389-0 (Version None)
Quarter: 2010Q4

REPORT INFORMATION
  Report Type: 
  Country: None (occurrence: None)
  Receive Date: 20101118
  Receipt Date: 20101104
  Transmission Date: 20110411
  Serious: Yes (Hospitalization, Other)
  Sender: FDA-Public Use
  Company Number: PHFR2010IE04461

PATIENT
  Sex: Male

DRUGS (4)
  1. CLOZARIL [Suspect]
     Indication: SCHIZOPHRENIA
     Dosage: UNK
     Route: 048
     Dates: start: 20100916
  2. LITHIUM [Concomitant]
  3. EPILIM [Concomitant]
  4. AGOMELATINE [Concomitant]

REACTIONS (7)
  - BLOOD PRESSURE INCREASED [None]
  - EOSINOPHIL COUNT INCREASED [None]
  - EYE DISORDER [None]
  - HEADACHE [None]
  - HEART RATE INCREASED [None]
  - INFECTION [None]
  - PUPILLARY REFLEX IMPAIRED [None]
